FAERS Safety Report 5179452-8 (Version None)
Quarter: 2006Q4

REPORT INFORMATION
  Report Type: 
  Country: None (occurrence: None)
  Receive Date: 20061211
  Receipt Date: 20061128
  Transmission Date: 20070319
  Serious: Yes (Death)
  Sender: FDA-Public Use
  Company Number: 2006JP004459

PATIENT
  Age: 68 Year
  Sex: Female

DRUGS (11)
  1. PROGRAF [Suspect]
     Indication: RHEUMATOID ARTHRITIS
     Dosage: 1 MG, UID/QD, ORAL
     Route: 048
     Dates: start: 20061011, end: 20061023
  2. RIMATIL (BUCILLAMINE) TABLET [Suspect]
     Indication: RHEUMATOID ARTHRITIS
     Dosage: 100 MG, TID, ORAL
     Route: 048
     Dates: start: 20060711, end: 20061023
  3. WARFARIN SODIUM [Concomitant]
  4. PREDNISOLONE [Concomitant]
  5. ETODOLAC [Concomitant]
  6. URSO (URSODEOXYCHOLIC ACID) [Concomitant]
  7. BONALON (ALENDRONIC ACID) [Concomitant]
  8. OSTELUC (ETODOLAC) [Concomitant]
  9. FOSAMAC (ALENDRONATE SODIUM) [Concomitant]
  10. SEROQUEL TABLET [Concomitant]
  11. TASMOLIN (BIPERIDEN) TABLET [Concomitant]

REACTIONS (4)
  - CHOLELITHIASIS [None]
  - INTERSTITIAL LUNG DISEASE [None]
  - MUSCULOSKELETAL STIFFNESS [None]
  - VENOUS THROMBOSIS [None]
